FAERS Safety Report 19315570 (Version 7)
Quarter: 2022Q2

REPORT INFORMATION
  Report Type: Report from Study
  Country: US (occurrence: US)
  Receive Date: 20210527
  Receipt Date: 20220520
  Transmission Date: 20220721
  Serious: Yes (Other)
  Sender: FDA-Public Use
  Company Number: NVSC2021US113607

PATIENT
  Age: 53 Year
  Sex: Female

DRUGS (3)
  1. ENTRESTO [Suspect]
     Active Substance: SACUBITRIL\VALSARTAN
     Indication: Product used for unknown indication
     Dosage: 50 MG (24/26 MG: SACUBITRIL 24.3 MG, VALSARTAN 25.7 MG), BID
     Route: 048
     Dates: start: 202104
  2. ENTRESTO [Suspect]
     Active Substance: SACUBITRIL\VALSARTAN
     Dosage: 50 MG (24/26 MG: SACUBITRIL 24.3 MG, VALSARTAN 25.7 MG), BID
     Route: 048
  3. ENTRESTO [Suspect]
     Active Substance: SACUBITRIL\VALSARTAN
     Dosage: UNK
     Route: 048
     Dates: start: 2021

REACTIONS (5)
  - Diabetes mellitus inadequate control [Unknown]
  - Anxiety [Unknown]
  - Weight decreased [Unknown]
  - Headache [Unknown]
  - Decreased activity [Unknown]

NARRATIVE: CASE EVENT DATE: 20210518
